FAERS Safety Report 6875861-7 (Version None)
Quarter: 2010Q3

REPORT INFORMATION
  Report Type: 
  Country: None (occurrence: None)
  Receive Date: 20100727
  Receipt Date: 20100714
  Transmission Date: 20110219
  Serious: Yes (Death, Life-Threatening)
  Sender: FDA-Public Use
  Company Number: JP-PFIZER INC-2009294127

PATIENT
  Age: 75 Year
  Sex: Female

DRUGS (10)
  1. SUNITINIB MALATE [Suspect]
     Indication: RENAL CELL CARCINOMA
     Dosage: 37.5 MG, 1X/DAY
     Route: 048
     Dates: start: 20091008, end: 20091022
  2. INOVAN [Concomitant]
     Dosage: 50 ML, 1X/DAY
     Route: 042
     Dates: start: 20091029, end: 20091102
  3. VENOGLOBULIN [Concomitant]
     Dosage: 5 G, 1X/DAY
     Route: 042
     Dates: start: 20091030, end: 20091102
  4. PLASMA PROTEIN FRACTION (HUMAN) [Concomitant]
     Dosage: UNK
     Route: 042
     Dates: start: 20091031, end: 20091102
  5. MAGNESIUM OXIDE [Concomitant]
     Dosage: 330 MG, 3X/DAY
     Route: 048
  6. LASIX [Concomitant]
     Dosage: 20 MG, 1X/DAY
     Route: 048
  7. HYPEN [Concomitant]
     Dosage: 200 MG, 2X/DAY
     Route: 048
  8. SELBEX [Concomitant]
     Dosage: 50 MG, 2X/DAY
     Route: 048
  9. TAKEPRON [Concomitant]
     Dosage: 30 MG, 1X/DAY
     Route: 048
  10. FENTANYL [Concomitant]
     Dosage: 4.2 MG, 1X/DAY
     Route: 050

REACTIONS (3)
  - DISSEMINATED INTRAVASCULAR COAGULATION [None]
  - NEUTROPENIC INFECTION [None]
  - SHOCK [None]
